FAERS Safety Report 13012444 (Version 1)
Quarter: 2016Q4

REPORT INFORMATION
  Report Type: Spontaneous
  Country: JP (occurrence: JP)
  Receive Date: 20161209
  Receipt Date: 20161209
  Transmission Date: 20170207
  Serious: Yes (Hospitalization)
  Sender: FDA-Public Use
  Company Number: JP-009507513-1612JPN002429

PATIENT
  Age: 90 Year
  Sex: Male
  Weight: 42 kg

DRUGS (3)
  1. DECADRON [Concomitant]
     Active Substance: DEXAMETHASONE
     Indication: NAUSEA
     Dosage: 3.3 MG, QD, OTHER PURPOSE: MALAISE
     Route: 051
     Dates: start: 20160708, end: 20160807
  2. CANCIDAS [Suspect]
     Active Substance: CASPOFUNGIN ACETATE
     Indication: SYSTEMIC CANDIDA
     Dosage: 50 MG, QD
     Route: 041
     Dates: start: 20160804, end: 20160807
  3. CANCIDAS [Suspect]
     Active Substance: CASPOFUNGIN ACETATE
     Indication: SYSTEMIC CANDIDA
     Dosage: 70 MG, QD
     Route: 041
     Dates: start: 20160803, end: 20160803

REACTIONS (1)
  - White blood cell count increased [Unknown]

NARRATIVE: CASE EVENT DATE: 20160806
